FAERS Safety Report 8880243 (Version 1)
Quarter: 2012Q4

REPORT INFORMATION
  Report Type: 
  Country: US (occurrence: US)
  Receive Date: 20121101
  Receipt Date: 20121101
  Transmission Date: 20130627
  Serious: Yes (Hospitalization, Other)
  Sender: FDA-Public Use
  Company Number: US-BAYER-2012-113643

PATIENT
  Age: 47 Year
  Sex: Female
  Weight: 81.63 kg

DRUGS (2)
  1. YASMIN [Suspect]
  2. NEXIUM [Concomitant]
     Indication: DISTRESS GASTROINTESTINAL
     Dosage: 40 mg, UNK
     Route: 048
     Dates: start: 200111

REACTIONS (2)
  - Deep vein thrombosis [Recovered/Resolved]
  - Cholecystitis [None]
